FAERS Safety Report 8350919-4 (Version None)
Quarter: 2012Q2

REPORT INFORMATION
  Report Type: 
  Country: None (occurrence: None)
  Receive Date: 20120510
  Receipt Date: 20120508
  Transmission Date: 20120825
  Serious: Yes (Other)
  Sender: FDA-Public Use
  Company Number: DE-PFIZER INC-2012104323

PATIENT
  Sex: Male

DRUGS (3)
  1. NEURONTIN [Suspect]
     Dosage: 600 MG, 3X/DAY
  2. MIRTAZAPINE [Concomitant]
     Dosage: UNK
  3. RASAGILINE [Concomitant]
     Dosage: UNK

REACTIONS (2)
  - SEROTONIN SYNDROME [None]
  - PYREXIA [None]
